FAERS Safety Report 9177810 (Version 2)
Quarter: 2013Q1

REPORT INFORMATION
  Report Type: Spontaneous
  Country: BR (occurrence: BR)
  Receive Date: 20130321
  Receipt Date: 20130329
  Transmission Date: 20140127
  Serious: Yes (Hospitalization, Other)
  Sender: FDA-Public Use
  Company Number: BR-ABBOTT-13X-020-1063839-00

PATIENT
  Sex: Male
  Weight: 65.5 kg

DRUGS (9)
  1. DEPAKENE [Suspect]
     Indication: CONVULSION
     Dosage: ONE TABLET IN THE MORNING/ ONE AFTERNOON/ ONE AT NIGHT
     Route: 048
     Dates: start: 2008, end: 2012
  2. DEPAKENE [Suspect]
     Indication: EPILEPSY
     Dosage: 500MG IN THE MORNING/ 250 MG IN THE AFTERNOON
     Route: 048
     Dates: start: 2012
  3. PURAN T4 [Concomitant]
     Indication: THYROID DISORDER
     Dosage: 1 TABLET AT MORNING, FASTING
     Route: 048
     Dates: start: 2003
  4. RISPERIDON [Concomitant]
     Indication: RELAXATION THERAPY
     Dosage: 1 TABLET AT NIGHT
     Route: 048
     Dates: start: 2008
  5. RISPERIDON [Concomitant]
     Indication: SLEEP DISORDER THERAPY
  6. FLUOXETINE [Concomitant]
     Indication: HEADACHE
     Dosage: 2 TABLETS PER DAY
     Route: 048
     Dates: start: 2008
  7. FLUOXETINE [Concomitant]
     Indication: SEDATIVE THERAPY
  8. FLUOXETINE [Concomitant]
     Indication: PRODUCT USED FOR UNKNOWN INDICATION
  9. INSULIN [Concomitant]
     Indication: DIABETES MELLITUS
     Dosage: DAILY DOSE 80 UI. 30UL AT MORNING/ 10UL AT AFTERNOON
     Route: 058
     Dates: start: 1984

REACTIONS (6)
  - Convulsion [Unknown]
  - Coma [Recovered/Resolved]
  - Convulsion [Recovered/Resolved]
  - Thrombosis [Recovered/Resolved]
  - Drug ineffective [Not Recovered/Not Resolved]
  - Pain in extremity [Recovered/Resolved]
